FAERS Safety Report 12384330 (Version 1)
Quarter: 2016Q2

REPORT INFORMATION
  Report Type: Spontaneous
  Country: US (occurrence: None)
  Receive Date: 20160518
  Receipt Date: 20160518
  Transmission Date: 20160815
  Serious: Yes (Hospitalization)
  Sender: FDA-Public Use
  Company Number: None

PATIENT
  Age: 79 Year
  Sex: Male

DRUGS (3)
  1. PREDNISONE. [Concomitant]
     Active Substance: PREDNISONE
  2. FAMOTIDINE. [Concomitant]
     Active Substance: FAMOTIDINE
  3. TOBRAMYCIN 300MG [Suspect]
     Active Substance: TOBRAMYCIN
     Indication: CHRONIC OBSTRUCTIVE PULMONARY DISEASE
     Dosage: 300MG BID NEB

REACTIONS (1)
  - Pseudomonas infection [None]

NARRATIVE: CASE EVENT DATE: 20160330
